FAERS Safety Report 4361250-6 (Version None)
Quarter: 2004Q2

REPORT INFORMATION
  Report Type: 
  Country: None (occurrence: None)
  Receive Date: 20040520
  Receipt Date: 20040421
  Transmission Date: 20050107
  Serious: Yes (Other)
  Sender: FDA-Public Use
  Company Number: PHBS2004JP05498

PATIENT
  Age: 73 Year
  Sex: Female

DRUGS (2)
  1. CYCLOSPORINE [Suspect]
     Indication: PEMPHIGUS
     Route: 065
  2. PREDNISOLONE [Suspect]

REACTIONS (2)
  - PARANEOPLASTIC SYNDROME [None]
  - PNEUMOCYSTIS CARINII PNEUMONIA [None]
